FAERS Safety Report 9701437 (Version 2)
Quarter: 2013Q4

REPORT INFORMATION
  Report Type: Spontaneous
  Country: US (occurrence: US)
  Receive Date: 20131121
  Receipt Date: 20131121
  Transmission Date: 20140711
  Serious: No
  Sender: FDA-Public Use
  Company Number: US-GILEAD-2008-0016675

PATIENT
  Sex: Female

DRUGS (17)
  1. LETAIRIS [Suspect]
     Indication: PULMONARY ARTERIAL HYPERTENSION
  2. METOPROLOL [Concomitant]
  3. LANOXIN [Concomitant]
  4. ZOCOR [Concomitant]
  5. SYMBICORT [Concomitant]
  6. SPIRIVA [Concomitant]
  7. ISOSORBIDE [Concomitant]
  8. COUMADIN [Concomitant]
  9. BUMEX [Concomitant]
  10. HYDRALAZINE [Concomitant]
  11. ALBUTEROL [Concomitant]
  12. PRILOSEC [Concomitant]
  13. AMARYL [Concomitant]
  14. ALLOPURINOL [Concomitant]
  15. KEFLEX [Concomitant]
  16. REGLAN [Concomitant]
  17. SENOKOT [Concomitant]

REACTIONS (1)
  - Nausea [None]
